FAERS Safety Report 5964777-6 (Version None)
Quarter: 2008Q4

REPORT INFORMATION
  Report Type: 
  Country: None (occurrence: None)
  Receive Date: 20081125
  Receipt Date: 20080312
  Transmission Date: 20090506
  Serious: No
  Sender: FDA-Public Use
  Company Number: US-BAYER-200811238BCC

PATIENT
  Age: 81 Year
  Sex: Male
  Weight: 73 kg

DRUGS (5)
  1. ALEVE [Suspect]
     Indication: BACK PAIN
     Dosage: AS USED: 660 MG  UNIT DOSE: 220 MG
     Route: 048
     Dates: start: 20070101, end: 20080311
  2. ALEVE [Suspect]
     Dosage: AS USED: 660 MG  UNIT DOSE: 220 MG
     Route: 048
     Dates: start: 20080312
  3. OXYCODONE HCL [Concomitant]
  4. SAW PALMETTO [Concomitant]
  5. GLUCOSAMINE [Concomitant]

REACTIONS (1)
  - BACK PAIN [None]
